FAERS Safety Report 11026957 (Version 1)
Quarter: 2015Q2

REPORT INFORMATION
  Report Type: Spontaneous
  Country: FR (occurrence: FR)
  Receive Date: 20150414
  Receipt Date: 20150414
  Transmission Date: 20150821
  Serious: No
  Sender: FDA-Public Use
  Company Number: FR-ELI_LILLY_AND_COMPANY-FR201504003332

PATIENT
  Age: 48 Year
  Sex: Male

DRUGS (1)
  1. CIALIS [Suspect]
     Active Substance: TADALAFIL
     Indication: PRODUCT USED FOR UNKNOWN INDICATION
     Dosage: 20 MG, UNKNOWN
     Route: 048
     Dates: start: 20150330, end: 20150330

REACTIONS (5)
  - Product counterfeit [Unknown]
  - Vision blurred [Unknown]
  - Vomiting [Unknown]
  - Intentional product misuse [Unknown]
  - Vertigo [Unknown]

NARRATIVE: CASE EVENT DATE: 20150330
